FAERS Safety Report 6572788-5 (Version None)
Quarter: 2010Q1

REPORT INFORMATION
  Report Type: 
  Country: None (occurrence: None)
  Receive Date: 20100205
  Receipt Date: 20100202
  Transmission Date: 20100710
  Serious: Yes (Death, Disabling)
  Sender: FDA-Public Use
  Company Number: JP-GENENTECH-297606

PATIENT
  Sex: Male

DRUGS (4)
  1. ACTIVASE [Suspect]
     Indication: BRAIN STEM INFARCTION
     Dosage: 10.34 MG, QD
     Route: 013
     Dates: start: 20080119, end: 20080119
  2. RADICUT [Concomitant]
     Indication: DRUG USE FOR UNKNOWN INDICATION
     Dosage: 30 MG, BID
     Route: 042
     Dates: start: 20080119, end: 20080124
  3. GLYCERIN [Concomitant]
     Indication: DRUG USE FOR UNKNOWN INDICATION
     Dosage: UNK ML, BID
     Route: 042
     Dates: start: 20080119, end: 20080124
  4. FRUCTOSE [Concomitant]
     Indication: DRUG USE FOR UNKNOWN INDICATION
     Dosage: UNK
     Route: 042
     Dates: start: 20080119, end: 20080124

REACTIONS (2)
  - CEREBRAL HAEMORRHAGE [None]
  - PNEUMONIA ASPIRATION [None]
